FAERS Safety Report 6010304-7 (Version None)
Quarter: 2008Q4

REPORT INFORMATION
  Report Type: 
  Country: None (occurrence: None)
  Receive Date: 20081218
  Receipt Date: 20080521
  Transmission Date: 20090506
  Serious: No
  Sender: FDA-Public Use
  Company Number: A0729022A

PATIENT
  Age: 69 Year
  Sex: Female

DRUGS (4)
  1. FLUTICASONE PROPIONATE [Suspect]
     Route: 045
     Dates: start: 20080507, end: 20080519
  2. ALLEGRA [Concomitant]
  3. LUVOX [Concomitant]
  4. THYROID MEDICATION [Concomitant]

REACTIONS (1)
  - INSOMNIA [None]
